FAERS Safety Report 7391454 (Version 5)
Quarter: 2016Q1

REPORT INFORMATION
  Report Type: Spontaneous
  Country: JP (occurrence: JP)
  Receive Date: 20100518
  Receipt Date: 20160125
  Transmission Date: 20160526
  Serious: No
  Sender: FDA-Public Use
  Company Number: JP-BRISTOL-MYERS SQUIBB COMPANY-14920797

PATIENT
  Sex: Female
  Weight: 50 kg

DRUGS (18)
  1. MIRADOL [Suspect]
     Active Substance: SULPIRIDE
     Indication: AFFECT LABILITY
     Dosage: 150 MG, QD
     Route: 048
     Dates: start: 2006
  2. LULLAN [Suspect]
     Active Substance: PEROSPIRONE HYDROCHLORIDE
     Indication: DEPRESSIVE SYMPTOM
  3. ABILIFY [Suspect]
     Active Substance: ARIPIPRAZOLE
     Indication: PERSONALITY DISORDER
  4. DEPROMEL [Suspect]
     Active Substance: FLUVOXAMINE
     Indication: PERSONALITY DISORDER
  5. ABILIFY [Suspect]
     Active Substance: ARIPIPRAZOLE
     Indication: SCHIZOPHRENIA
     Dosage: 21 MG, QD
     Route: 048
  6. ABILIFY [Suspect]
     Active Substance: ARIPIPRAZOLE
     Indication: DEPRESSIVE SYMPTOM
  7. LULLAN [Suspect]
     Active Substance: PEROSPIRONE HYDROCHLORIDE
     Indication: PERSONALITY DISORDER
  8. SEROQUEL [Suspect]
     Active Substance: QUETIAPINE FUMARATE
     Indication: PERSONALITY DISORDER
  9. SEROQUEL [Suspect]
     Active Substance: QUETIAPINE FUMARATE
     Indication: DEPRESSIVE SYMPTOM
  10. ABILIFY [Suspect]
     Active Substance: ARIPIPRAZOLE
     Indication: AFFECT LABILITY
     Dosage: 6 MG, QD
     Route: 048
     Dates: start: 201009
  11. DEPROMEL [Suspect]
     Active Substance: FLUVOXAMINE
     Indication: AFFECT LABILITY
     Dosage: 50 MG, QD
     Route: 048
     Dates: start: 2006
  12. MIRADOL [Suspect]
     Active Substance: SULPIRIDE
     Indication: DEPRESSIVE SYMPTOM
  13. SEROQUEL [Suspect]
     Active Substance: QUETIAPINE FUMARATE
     Indication: AFFECT LABILITY
     Dosage: FORM : TABLET
     Route: 048
     Dates: start: 2006
  14. BENZALIN [Suspect]
     Active Substance: NITRAZEPAM
     Indication: INSOMNIA
     Dosage: 5 MG, QD
     Route: 048
     Dates: start: 2006
  15. DEPROMEL [Suspect]
     Active Substance: FLUVOXAMINE
     Indication: DEPRESSIVE SYMPTOM
  16. LULLAN [Suspect]
     Active Substance: PEROSPIRONE HYDROCHLORIDE
     Indication: AFFECT LABILITY
     Dosage: 8 MG, QD
     Route: 048
     Dates: start: 2006
  17. ABILIFY [Suspect]
     Active Substance: ARIPIPRAZOLE
     Indication: AFFECT LABILITY
  18. MIRADOL [Suspect]
     Active Substance: SULPIRIDE
     Indication: PERSONALITY DISORDER

REACTIONS (2)
  - Maternal exposure during pregnancy [Recovered/Resolved]
  - Normal newborn [Unknown]

NARRATIVE: CASE EVENT DATE: 2010
